FAERS Safety Report 7754335-5 (Version None)
Quarter: 2011Q3

REPORT INFORMATION
  Report Type: 
  Country: None (occurrence: None)
  Receive Date: 20110915
  Receipt Date: 20110907
  Transmission Date: 20111222
  Serious: Yes (Other)
  Sender: FDA-Public Use
  Company Number: PHHY2011IT80677

PATIENT
  Age: 68 Year
  Sex: Female

DRUGS (1)
  1. ENALAPRIL MALEATE [Suspect]
     Dosage: UNK UKN, UNK

REACTIONS (2)
  - RASH PAPULOSQUAMOUS [None]
  - CUTANEOUS LUPUS ERYTHEMATOSUS [None]
